FAERS Safety Report 12242041 (Version 3)
Quarter: 2016Q4

REPORT INFORMATION
  Report Type: Spontaneous
  Country: US (occurrence: US)
  Receive Date: 20160406
  Receipt Date: 20161212
  Transmission Date: 20170207
  Serious: Yes (Other)
  Sender: FDA-Public Use
  Company Number: US-ELI_LILLY_AND_COMPANY-US201604000352

PATIENT
  Age: 38 Year
  Sex: Female
  Weight: 59.86 kg

DRUGS (3)
  1. CYMBALTA [Suspect]
     Active Substance: DULOXETINE HYDROCHLORIDE
     Indication: PAIN
     Dosage: 60 MG, QD
     Route: 048
  2. CYMBALTA [Suspect]
     Active Substance: DULOXETINE HYDROCHLORIDE
     Indication: DEPRESSION
     Dosage: 30 MG, QD
     Route: 048
     Dates: start: 20140313
  3. CYMBALTA [Suspect]
     Active Substance: DULOXETINE HYDROCHLORIDE
     Indication: FIBROMYALGIA

REACTIONS (18)
  - Crying [Unknown]
  - Mood swings [Unknown]
  - Abdominal pain upper [Unknown]
  - Drug withdrawal syndrome [Unknown]
  - Tinnitus [Unknown]
  - Anxiety [Unknown]
  - Paraesthesia [Recovering/Resolving]
  - Intentional product misuse [Unknown]
  - Agitation [Unknown]
  - Dizziness [Unknown]
  - Dysphoria [Unknown]
  - Affect lability [Unknown]
  - Irritability [Unknown]
  - Nausea [Unknown]
  - Insomnia [Unknown]
  - Burning sensation [Unknown]
  - Hyperhidrosis [Unknown]
  - Headache [Unknown]

NARRATIVE: CASE EVENT DATE: 20151231
